FAERS Safety Report 7862093-9 (Version None)
Quarter: 2011Q4

REPORT INFORMATION
  Report Type: 
  Country: None (occurrence: None)
  Receive Date: 20111025
  Receipt Date: 20111014
  Transmission Date: 20120403
  Serious: No
  Sender: FDA-Public Use
  Company Number: FK201102260

PATIENT
  Age: 63 Year
  Sex: Male
  Weight: 95.6 kg

DRUGS (1)
  1. NEBUPENT [Suspect]
     Indication: ANTIFUNGAL PROPHYLAXIS
     Dosage: 300 MG, MONTHLY VIA INHALATION
     Route: 055
     Dates: start: 20111014, end: 20111014

REACTIONS (4)
  - OXYGEN SATURATION DECREASED [None]
  - DYSPNOEA [None]
  - ERYTHEMA [None]
  - WHEEZING [None]
